FAERS Safety Report 12694005 (Version 3)
Quarter: 2016Q4

REPORT INFORMATION
  Report Type: Spontaneous
  Country: US (occurrence: US)
  Receive Date: 20160829
  Receipt Date: 20161013
  Transmission Date: 20170207
  Serious: Yes (Death)
  Sender: FDA-Public Use
  Company Number: US-PFIZER INC-2016402156

PATIENT
  Age: 64 Year
  Sex: Male

DRUGS (4)
  1. VFEND [Suspect]
     Active Substance: VORICONAZOLE
     Indication: FUSARIUM INFECTION
     Dosage: 300 MG, 2X/DAY
     Dates: start: 201511
  2. VFEND [Suspect]
     Active Substance: VORICONAZOLE
     Dosage: 50 MG, UNK
  3. TERBINAFINE. [Concomitant]
     Active Substance: TERBINAFINE
     Dosage: UNK
  4. VFEND [Suspect]
     Active Substance: VORICONAZOLE
     Dosage: 200 MG, UNK

REACTIONS (4)
  - Decreased appetite [Unknown]
  - Dysphagia [Unknown]
  - Acute myeloid leukaemia [Fatal]
  - Product size issue [Unknown]

NARRATIVE: CASE EVENT DATE: 20160715
